FAERS Safety Report 9909538 (Version 1)
Quarter: 2014Q1

REPORT INFORMATION
  Report Type: Spontaneous
  Country: US (occurrence: None)
  Receive Date: 20140214
  Receipt Date: 20140214
  Transmission Date: 20141002
  Serious: No
  Sender: FDA-Public Use
  Company Number: None

PATIENT
  Age: 29 Year
  Sex: Male

DRUGS (6)
  1. PROMETHAZINE [Suspect]
     Route: 030
  2. ZOFRAN [Concomitant]
  3. QUETIAPINE [Concomitant]
  4. CITALOPRAM [Concomitant]
  5. LORATADINE [Concomitant]
  6. TRAMADOL [Concomitant]

REACTIONS (2)
  - Injection site reaction [None]
  - Drug administration error [None]
